FAERS Safety Report 11930632 (Version 1)
Quarter: 2016Q1

REPORT INFORMATION
  Report Type: Spontaneous
  Country: US (occurrence: None)
  Receive Date: 20160119
  Receipt Date: 20160119
  Transmission Date: 20160526
  Serious: Yes (Hospitalization)
  Sender: FDA-Public Use
  Company Number: None

PATIENT
  Age: 70 Year
  Sex: Male
  Weight: 94.6 kg

DRUGS (5)
  1. FAMOTIDINE. [Concomitant]
     Active Substance: FAMOTIDINE
  2. LISINOPRIL. [Concomitant]
     Active Substance: LISINOPRIL
  3. ZERBAXA [Suspect]
     Active Substance: CEFTOLOZANE SULFATE\TAZOBACTAM SODIUM
     Indication: PSEUDOMONAL BACTERAEMIA
     Dates: start: 20150723, end: 20150812
  4. TOBRAMYCIN 220 MG UNKNOWN [Suspect]
     Active Substance: TOBRAMYCIN
     Indication: PSEUDOMONAL BACTERAEMIA
     Dates: start: 20150723, end: 20150812
  5. ALLOPURINOL. [Concomitant]
     Active Substance: ALLOPURINOL

REACTIONS (3)
  - Acute kidney injury [None]
  - Anaemia [None]
  - Renal tubular necrosis [None]

NARRATIVE: CASE EVENT DATE: 20150812
